FAERS Safety Report 21961654 (Version 2)
Quarter: 2023Q1

REPORT INFORMATION
  Report Type: Spontaneous
  Country: JP (occurrence: JP)
  Receive Date: 20230207
  Receipt Date: 20230209
  Transmission Date: 20230417
  Serious: Yes (Hospitalization)
  Sender: FDA-Public Use
  Company Number: JP-KYOWAKIRIN-2023AKK001413

PATIENT
  Age: 71 Year
  Sex: Male

DRUGS (1)
  1. DARBEPOETIN ALFA [Suspect]
     Active Substance: DARBEPOETIN ALFA
     Indication: Product used for unknown indication
     Dosage: 360 UG, 1X/3 WEEKS
     Route: 065
     Dates: start: 20201201, end: 20220712

REACTIONS (1)
  - COVID-19 [Recovered/Resolved]

NARRATIVE: CASE EVENT DATE: 20220718
